FAERS Safety Report 9248978 (Version 1)
Quarter: 2013Q1

REPORT INFORMATION
  Report Type: Spontaneous
  Country: US (occurrence: None)
  Receive Date: 20130305
  Receipt Date: 20130305
  Transmission Date: 20140127
  Serious: Yes (Other)
  Sender: FDA-Public Use
  Company Number: 163-21880-12101171

PATIENT
  Age: 65 Year
  Sex: Female

DRUGS (10)
  1. REVLIMID [Suspect]
     Indication: PLASMA CELL MYELOMA
     Dosage: 15 MG, 21 IN 28 D, PO
     Route: 048
     Dates: start: 20091121
  2. ALBUTEROL (SALBUTAMOL) (UNKNOWN) [Concomitant]
  3. AREDIA (PAMIDRONATE DISODIUM) (UNKNOWN) [Concomitant]
  4. ASPIRIN (ACETYLSALICYLIC ACID) (UNKNOWN) (ACETYLSALICYLIC ACID) [Concomitant]
  5. DEXAMETHASONE (DEXAMETHASONE) (UNKNOWN) [Concomitant]
  6. GABAPENTIN (GABAPENTIN) (UNKNOWN) (GABAPENTIN) [Concomitant]
  7. LOTREL (LOTREL) (UNKNOWN) [Concomitant]
  8. METOPROLOL (METOPROLOL) (UNKNOWN) [Concomitant]
  9. SIMVASTATIN [Concomitant]
  10. TYLENOL (PARACETAMOL) (UNKNOWN) [Concomitant]

REACTIONS (2)
  - Chest pain [None]
  - Dyspnoea [None]
